FAERS Safety Report 18571765 (Version 3)
Quarter: 2020Q4

REPORT INFORMATION
  Report Type: Spontaneous
  Country: PL (occurrence: PL)
  Receive Date: 20201202
  Receipt Date: 20201210
  Transmission Date: 20210114
  Serious: Yes (Hospitalization, Disabling, Other)
  Sender: FDA-Public Use
  Company Number: NVSC2020PL305618

PATIENT
  Age: 77 Year
  Sex: Male

DRUGS (1)
  1. IMATINIB. [Suspect]
     Active Substance: IMATINIB MESYLATE
     Indication: CHRONIC MYELOID LEUKAEMIA
     Dosage: 400 MG, QD
     Route: 048

REACTIONS (11)
  - Rash erythematous [Recovered/Resolved]
  - Skin abrasion [Recovered/Resolved]
  - Leukopenia [Recovering/Resolving]
  - Eosinophilia [Recovering/Resolving]
  - Pruritus [Recovered/Resolved]
  - Rash papular [Recovered/Resolved]
  - Skin exfoliation [Recovered/Resolved]
  - Skin lesion [Recovered/Resolved]
  - Lymphadenopathy [Recovering/Resolving]
  - Anaemia [Recovering/Resolving]
  - Exfoliative rash [Recovered/Resolved]
